FAERS Safety Report 9137832 (Version 1)
Quarter: 2013Q1

REPORT INFORMATION
  Report Type: Spontaneous
  Country: US (occurrence: US)
  Receive Date: 20130304
  Receipt Date: 20130304
  Transmission Date: 20140127
  Serious: No
  Sender: FDA-Public Use
  Company Number: US-ABBOTT-12P-163-0945174-00

PATIENT
  Sex: Male

DRUGS (5)
  1. ANDROGEL 1% [Suspect]
     Indication: BLOOD TESTOSTERONE DECREASED
     Dosage: PACKET-1 IN 1 DAY
     Route: 061
     Dates: start: 201109, end: 201201
  2. ANDROGEL 1% [Suspect]
     Route: 061
     Dates: start: 201201, end: 201205
  3. ANDROGEL 1.62% [Suspect]
     Indication: BLOOD TESTOSTERONE DECREASED
     Dosage: 3 PUMPS DAILY
     Route: 061
     Dates: start: 201205
  4. AMLODIPINE [Concomitant]
     Indication: HYPERTENSION
  5. PROTONIX [Concomitant]
     Indication: GASTROOESOPHAGEAL REFLUX DISEASE

REACTIONS (5)
  - Musculoskeletal pain [Not Recovered/Not Resolved]
  - Arthralgia [Recovered/Resolved]
  - Blood testosterone decreased [Recovered/Resolved]
  - Musculoskeletal pain [Recovered/Resolved]
  - Blood testosterone decreased [Unknown]
